FAERS Safety Report 10020067 (Version 4)
Quarter: 2014Q2

REPORT INFORMATION
  Report Type: Spontaneous
  Country: JP (occurrence: JP)
  Receive Date: 20140318
  Receipt Date: 20140605
  Transmission Date: 20141212
  Serious: Yes (Hospitalization, Other)
  Sender: FDA-Public Use
  Company Number: JP-GILEAD-2013-0085003

PATIENT
  Age: 60 Year
  Sex: Male
  Weight: 49 kg

DRUGS (3)
  1. HEPSERA [Suspect]
     Indication: CHRONIC HEPATITIS B
     Dosage: 10MG PER DAY
     Route: 048
     Dates: start: 20080110
  2. ZEFIX                              /01221401/ [Concomitant]
     Dosage: UNK
     Route: 048
     Dates: start: 20061023
  3. URSO                               /00465701/ [Concomitant]
     Dosage: UNK
     Route: 048
     Dates: start: 20061023

REACTIONS (3)
  - Fracture [Unknown]
  - Fanconi syndrome acquired [Not Recovered/Not Resolved]
  - Renal impairment [Unknown]
